FAERS Safety Report 13939673 (Version 1)
Quarter: 2017Q3

REPORT INFORMATION
  Report Type: Spontaneous
  Country: US (occurrence: US)
  Receive Date: 20170906
  Receipt Date: 20170906
  Transmission Date: 20171127
  Serious: Yes (Other)
  Sender: FDA-Public Use
  Company Number: US-JNJFOC-20170827756

PATIENT

DRUGS (2)
  1. LOPERAMIDE HYDROCHLORIDE. [Suspect]
     Active Substance: LOPERAMIDE HYDROCHLORIDE
     Route: 065
  2. LOPERAMIDE HYDROCHLORIDE. [Suspect]
     Active Substance: LOPERAMIDE HYDROCHLORIDE
     Indication: PRODUCT USED FOR UNKNOWN INDICATION
     Dosage: THE MOST COMMON REPORTED DOSE WAS 200 MG
     Route: 065

REACTIONS (11)
  - Suicide attempt [Unknown]
  - Electrocardiogram QRS complex prolonged [Unknown]
  - Ventricular arrhythmia [Unknown]
  - Electrocardiogram QT prolonged [Unknown]
  - Atrioventricular block first degree [Unknown]
  - Intentional self-injury [Unknown]
  - Intentional overdose [Unknown]
  - Drug abuse [Unknown]
  - Accidental exposure to product by child [Unknown]
  - Toxicity to various agents [Unknown]
  - Intentional product misuse [Unknown]
